FAERS Safety Report 6501764-3 (Version None)
Quarter: 2009Q4

REPORT INFORMATION
  Report Type: 
  Country: None (occurrence: None)
  Receive Date: 20091216
  Receipt Date: 20091204
  Transmission Date: 20100525
  Serious: Yes (Other)
  Sender: FDA-Public Use
  Company Number: FR-PFIZER INC-2009305935

PATIENT
  Age: 17 Year
  Sex: Female

DRUGS (2)
  1. RELPAX [Suspect]
     Dosage: 1 DF, SINGLE
     Route: 048
     Dates: start: 20081201
  2. AVLOCARDYL [Concomitant]
     Dosage: 40 SCORED TABLET, 60 MG, 1X/DAY
     Route: 048
     Dates: start: 20081201

REACTIONS (4)
  - ANAPHYLACTOID REACTION [None]
  - ANGIOEDEMA [None]
  - SKIN TEST NEGATIVE [None]
  - URTICARIA [None]
